FAERS Safety Report 4935308-4 (Version None)
Quarter: 2006Q1

REPORT INFORMATION
  Report Type: 
  Country: None (occurrence: None)
  Receive Date: 20060307
  Receipt Date: 20050408
  Transmission Date: 20060701
  Serious: Yes (Hospitalization)
  Sender: FDA-Public Use
  Company Number: US-MERCK-0504USA01641

PATIENT
  Age: 56 Year
  Sex: Male

DRUGS (9)
  1. VIOXX [Suspect]
     Route: 048
  2. AVANDIA [Concomitant]
     Route: 065
  3. LASIX [Concomitant]
     Route: 065
  4. GLUCOPHAGE [Concomitant]
     Route: 065
  5. PRAVACHOL [Concomitant]
     Route: 065
  6. PROTONIX [Concomitant]
     Route: 065
  7. SYNTHROID [Concomitant]
     Route: 065
  8. LITHIUM SUCCINATE [Concomitant]
     Route: 065
  9. [THERAPY UNSPECIFIED] [Concomitant]
     Route: 065

REACTIONS (4)
  - CEREBRAL INFARCTION [None]
  - DEPRESSED LEVEL OF CONSCIOUSNESS [None]
  - HYPOKALAEMIA [None]
  - HYPOMAGNESAEMIA [None]
